FAERS Safety Report 8383436-6 (Version None)
Quarter: 2012Q2

REPORT INFORMATION
  Report Type: 
  Country: None (occurrence: None)
  Receive Date: 20120524
  Receipt Date: 20120516
  Transmission Date: 20120825
  Serious: Yes (Other)
  Sender: FDA-Public Use
  Company Number: PHEH2012US006626

PATIENT
  Sex: Female

DRUGS (4)
  1. ATENOLOL [Concomitant]
  2. ATENOLOL [Concomitant]
     Indication: HYPERTENSION
     Dosage: 50 MG,
  3. SYNTHROID [Concomitant]
     Indication: HYPOTHYROIDISM
     Dosage: 137 UL,
  4. TASIGNA [Suspect]
     Indication: CHRONIC MYELOID LEUKAEMIA
     Dosage: 200 MG, BID
     Route: 048
     Dates: start: 20111221

REACTIONS (2)
  - DIABETES MELLITUS [None]
  - ALOPECIA [None]
